FAERS Safety Report 6577963-1 (Version None)
Quarter: 2010Q1

REPORT INFORMATION
  Report Type: 
  Country: None (occurrence: None)
  Receive Date: 20100211
  Receipt Date: 20100203
  Transmission Date: 20100710
  Serious: Yes (Other)
  Sender: FDA-Public Use
  Company Number: IT-BAYER-201015218GPV

PATIENT

DRUGS (1)
  1. SORAFENIB [Suspect]
     Indication: BILE DUCT CANCER
     Dosage: TOTAL DAILY DOSE: 800 MG

REACTIONS (1)
  - DISSEMINATED INTRAVASCULAR COAGULATION [None]
